FAERS Safety Report 8467488-0 (Version None)
Quarter: 2012Q2

REPORT INFORMATION
  Report Type: 
  Country: None (occurrence: None)
  Receive Date: 20120323
  Receipt Date: 20110816
  Transmission Date: 20120825
  Serious: Yes (Hospitalization)
  Sender: FDA-Public Use
  Company Number: 163-21880-11082062

PATIENT
  Age: 59 Year
  Sex: Male

DRUGS (1)
  1. LENALIDOMIDE [Suspect]
     Indication: LYMPHOCYTIC LEUKAEMIA
     Dosage: 10 MG, X 21 DAYS, PO
     Route: 048
     Dates: start: 20110101, end: 20110701

REACTIONS (1)
  - PNEUMONIA [None]
